FAERS Safety Report 4328662-8 (Version None)
Quarter: 2004Q1

REPORT INFORMATION
  Report Type: 
  Country: None (occurrence: None)
  Receive Date: 20040323
  Receipt Date: 20040305
  Transmission Date: 20041129
  Serious: Yes (Life-Threatening, Hospitalization, Other)
  Sender: FDA-Public Use
  Company Number: 233994

PATIENT
  Age: 51 Year
  Sex: Female
  Weight: 60 kg

DRUGS (16)
  1. NOVOSEVEN [Suspect]
     Indication: CEREBRAL HAEMORRHAGE
     Dosage: SINGLE, INTRAVENOUS
     Route: 042
     Dates: start: 20031116, end: 20031116
  2. EBRANTIL (URAPIDIL) [Concomitant]
  3. PARACEFAN (CLONIDINE HYDROCHLORIDE) [Concomitant]
  4. FENTANYL [Concomitant]
  5. DIGOXIN [Concomitant]
  6. DOCITON (PROPRANOLOL HYDROCHLORIDE) [Concomitant]
  7. METHIMAZOLE [Concomitant]
  8. CARBIMAZOL ^SPOFA^ (CARBIMAZOLE) [Concomitant]
  9. RAMIPRIL [Concomitant]
  10. PROPRANOLOL [Concomitant]
  11. VERGENTAN (ALIZAPIRDE HYDROCHLORIDE) [Concomitant]
  12. ACETAMINOPHEN [Concomitant]
  13. ACETYLCYSTEINE [Concomitant]
  14. GASTROZEPIN [Concomitant]
  15. EMBOLEX [Concomitant]
  16. NOVALDIN INJ [Concomitant]

REACTIONS (3)
  - ATRIAL FIBRILLATION [None]
  - MYOCARDIAL INFARCTION [None]
  - TRACHEAL FISTULA REPAIR [None]
